FAERS Safety Report 23530723 (Version 7)
Quarter: 2024Q4

REPORT INFORMATION
  Report Type: Report from Study
  Country: US (occurrence: US)
  Receive Date: 20240216
  Receipt Date: 20241210
  Transmission Date: 20250115
  Serious: Yes (Hospitalization, Other)
  Sender: TAKEDA
  Company Number: US-TAKEDA-2024TUS008965

PATIENT
  Age: 53 Year
  Sex: Male
  Weight: 52.88 kg

DRUGS (4)
  1. FRUQUINTINIB [Suspect]
     Active Substance: FRUQUINTINIB
     Indication: Rectal cancer
     Dosage: 5 MILLIGRAM
  2. FRUQUINTINIB [Suspect]
     Active Substance: FRUQUINTINIB
     Dosage: 5 MILLIGRAM
  3. FRUQUINTINIB [Suspect]
     Active Substance: FRUQUINTINIB
     Dosage: 5 MILLIGRAM
  4. LONSURF [Concomitant]
     Active Substance: TIPIRACIL HYDROCHLORIDE\TRIFLURIDINE
     Dosage: UNK

REACTIONS (21)
  - Amnesia [Unknown]
  - Neoplasm [Unknown]
  - Pneumothorax [Unknown]
  - Intestinal perforation [Unknown]
  - Dry skin [Unknown]
  - Haemoptysis [Unknown]
  - Blood pressure decreased [Unknown]
  - Pigmentation disorder [Unknown]
  - Abdominal pain upper [Unknown]
  - Pain [Unknown]
  - Chills [Unknown]
  - Gastrointestinal disorder [Unknown]
  - Blood pressure abnormal [Unknown]
  - Glossodynia [Unknown]
  - Dysphagia [Unknown]
  - Oropharyngeal pain [Unknown]
  - Weight decreased [Unknown]
  - Fatigue [Unknown]
  - Decreased appetite [Unknown]
  - Stomatitis [Unknown]
  - Asthenia [Unknown]

NARRATIVE: CASE EVENT DATE: 20240301
